FAERS Safety Report 18359162 (Version 1)
Quarter: 2020Q4

REPORT INFORMATION
  Report Type: Spontaneous
  Country: US (occurrence: US)
  Receive Date: 20201007
  Receipt Date: 20201007
  Transmission Date: 20210114
  Serious: Yes (Hospitalization)
  Sender: FDA-Public Use
  Company Number: None

PATIENT
  Age: 75 Year
  Sex: Female
  Weight: 85.05 kg

DRUGS (3)
  1. DEFINITY [Suspect]
     Active Substance: PERFLUTREN
     Indication: ENDOCARDIAL DISEASE
     Dosage: ?          OTHER FREQUENCY:ONE TIME DOSE;?
     Route: 040
     Dates: start: 20201007, end: 20201007
  2. DOBUTAMINE [Concomitant]
     Active Substance: DOBUTAMINE HYDROCHLORIDE
     Dates: start: 20201007, end: 20201007
  3. NORMAL SALINE [Concomitant]
     Active Substance: SODIUM CHLORIDE
     Dates: start: 20201007, end: 20201007

REACTIONS (7)
  - Rash [None]
  - Blood pressure decreased [None]
  - Agitation [None]
  - Loss of consciousness [None]
  - Dizziness [None]
  - Anxiety [None]
  - Pruritus [None]

NARRATIVE: CASE EVENT DATE: 20201007
